FAERS Safety Report 25328206 (Version 2)
Quarter: 2025Q2

REPORT INFORMATION
  Report Type: Spontaneous
  Country: US (occurrence: US)
  Receive Date: 20250518
  Receipt Date: 20250530
  Transmission Date: 20250716
  Serious: Yes (Hospitalization)
  Sender: AIMMUNE
  Company Number: US-AIMMUNE THERAPEUTICS, INC.-2025AIMT00465

PATIENT

DRUGS (1)
  1. VOWST [Suspect]
     Active Substance: DONOR HUMAN STOOL SPORES (ETHANOL TREATED)
     Indication: Clostridium difficile infection
     Route: 048
     Dates: start: 20250506, end: 20250506

REACTIONS (1)
  - Respiratory tract infection [Unknown]

NARRATIVE: CASE EVENT DATE: 20250507
